FAERS Safety Report 13541270 (Version 2)
Quarter: 2018Q1

REPORT INFORMATION
  Report Type: Other
  Country: CA (occurrence: CA)
  Receive Date: 20170512
  Receipt Date: 20180105
  Transmission Date: 20180508
  Serious: Yes (Death)
  Sender: FDA-Public Use
  Company Number: CA-ASTELLAS-2017US018546

PATIENT
  Age: 84 Year
  Sex: Male

DRUGS (1)
  1. XTANDI [Suspect]
     Active Substance: ENZALUTAMIDE
     Indication: PROSTATE CANCER
     Route: 048
     Dates: start: 20160804

REACTIONS (1)
  - Death [Fatal]

NARRATIVE: CASE EVENT DATE: 201702
